FAERS Safety Report 7330000-3 (Version None)
Quarter: 2011Q1

REPORT INFORMATION
  Report Type: 
  Country: None (occurrence: None)
  Receive Date: 20110303
  Receipt Date: 20110218
  Transmission Date: 20110831
  Serious: Yes (Hospitalization)
  Sender: FDA-Public Use
  Company Number: FR-GENENTECH-314339

PATIENT
  Sex: Female

DRUGS (2)
  1. LUCENTIS [Suspect]
     Indication: MACULAR DEGENERATION
     Dosage: UNK
     Route: 031
     Dates: start: 20101126
  2. LUCENTIS [Suspect]
     Dosage: UNK
     Route: 031
     Dates: start: 20110112

REACTIONS (1)
  - CEREBROVASCULAR ACCIDENT [None]
